FAERS Safety Report 9304991 (Version 1)
Quarter: 2013Q1

REPORT INFORMATION
  Report Type: Spontaneous
  Country: IT (occurrence: None)
  Receive Date: 20130205
  Receipt Date: 20130205
  Transmission Date: 20140127
  Serious: Yes (Hospitalization)
  Sender: FDA-Public Use
  Company Number: AUR-APL-2013-01002

PATIENT
  Age: 69 Year
  Sex: Female

DRUGS (3)
  1. METFORMIN (METFORMIN) [Suspect]
     Indication: DIABETES MELLITUS
     Route: 048
     Dates: start: 20121217, end: 20130117
  2. TAVOR (LORAZEPAM) [Concomitant]
  3. ALLOPURINOL [Concomitant]

REACTIONS (5)
  - Dyspnoea [None]
  - Metabolic acidosis [None]
  - Renal failure [None]
  - Alanine aminotransferase increased [None]
  - Aspartate aminotransferase increased [None]
